FAERS Safety Report 7826098-6 (Version None)
Quarter: 2011Q4

REPORT INFORMATION
  Report Type: 
  Country: None (occurrence: None)
  Receive Date: 20111019
  Receipt Date: 20111014
  Transmission Date: 20120403
  Serious: Yes (Other)
  Sender: FDA-Public Use
  Company Number: GB-ABBOTT-11P-167-0847803-00

PATIENT
  Sex: Female

DRUGS (3)
  1. LANSOPRAZOLE [Concomitant]
     Indication: PRODUCT USED FOR UNKNOWN INDICATION
  2. TEGRETOL [Concomitant]
     Indication: PRODUCT USED FOR UNKNOWN INDICATION
  3. VALPROIC ACID [Suspect]
     Indication: EPILEPSY
     Dosage: 2 DOSAGE FORM DAILY
     Route: 048
     Dates: start: 20110809

REACTIONS (3)
  - MALAISE [None]
  - DRUG DISPENSING ERROR [None]
  - EPILEPSY [None]
